FAERS Safety Report 22219622 (Version 1)
Quarter: 2023Q2

REPORT INFORMATION
  Report Type: Spontaneous
  Country: AU (occurrence: AU)
  Receive Date: 20230417
  Receipt Date: 20230417
  Transmission Date: 20230722
  Serious: Yes (Other)
  Sender: FDA-Public Use
  Company Number: AU-AMGEN-AUSSP2023061563

PATIENT
  Age: 58 Year
  Sex: Female

DRUGS (2)
  1. REPATHA [Suspect]
     Active Substance: EVOLOCUMAB
     Indication: Blood cholesterol increased
     Dosage: 1X D (6 MONTHS)
     Route: 065
  2. REPATHA [Suspect]
     Active Substance: EVOLOCUMAB
     Indication: Low density lipoprotein abnormal

REACTIONS (7)
  - Coronary arterial stent insertion [Unknown]
  - Pain in extremity [Unknown]
  - Musculoskeletal chest pain [Unknown]
  - Condition aggravated [Unknown]
  - Fatigue [Unknown]
  - Myalgia [Unknown]
  - Back pain [Unknown]
